FAERS Safety Report 8581242-0 (Version None)
Quarter: 2012Q3

REPORT INFORMATION
  Report Type: 
  Country: None (occurrence: None)
  Receive Date: 20120809
  Receipt Date: 20120803
  Transmission Date: 20120928
  Serious: Yes (Hospitalization)
  Sender: FDA-Public Use
  Company Number: PHHO2012IL001455

PATIENT
  Sex: Male

DRUGS (8)
  1. LOPRESSOR [Suspect]
     Indication: TYPE 2 DIABETES MELLITUS
  2. LANTUS [Concomitant]
     Indication: TYPE 2 DIABETES MELLITUS
     Dosage: 50 IU, UNK
  3. BETA BLOCKING AGENTS [Concomitant]
  4. ASPIRIN [Concomitant]
  5. SAXAGLIPTIN [Concomitant]
     Indication: TYPE 2 DIABETES MELLITUS
     Dosage: UNK
     Dates: start: 20110315
  6. APIDRA [Concomitant]
     Indication: TYPE 2 DIABETES MELLITUS
     Dosage: 60 IU, UNK
  7. METFORMIN HYDROCHLORIDE [Concomitant]
     Indication: TYPE 2 DIABETES MELLITUS
     Dosage: UNK
  8. ANGIOTENSIN CONVERTING ENZYME BLOCKERS [Concomitant]

REACTIONS (3)
  - NON-CARDIAC CHEST PAIN [None]
  - ANGINA PECTORIS [None]
  - BRADYCARDIA [None]
